FAERS Safety Report 7281812-6 (Version None)
Quarter: 2011Q1

REPORT INFORMATION
  Report Type: 
  Country: None (occurrence: None)
  Receive Date: 20110208
  Receipt Date: 20110128
  Transmission Date: 20110831
  Serious: Yes (Death, Life-Threatening, Hospitalization)
  Sender: FDA-Public Use
  Company Number: JP-JNJFOC-20101208611

PATIENT
  Sex: Female
  Weight: 80 kg

DRUGS (16)
  1. VERAPAMIL HCL [Concomitant]
     Indication: TACHYARRHYTHMIA
     Route: 048
  2. REMICADE [Suspect]
     Route: 042
  3. PROMAC (POLAPREZINC) [Concomitant]
     Indication: GASTRITIS
     Route: 048
  4. REMICADE [Suspect]
     Route: 042
  5. REMICADE [Suspect]
     Route: 042
  6. METHOTREXATE [Suspect]
     Indication: RHEUMATOID ARTHRITIS
     Route: 048
  7. PYDOXAL [Concomitant]
     Indication: PROPHYLAXIS
     Route: 048
  8. REMICADE [Suspect]
     Route: 042
  9. ONEALFA [Concomitant]
     Indication: OSTEOPOROSIS
     Route: 048
  10. BLOPRESS [Concomitant]
     Indication: HYPERTENSION
     Route: 048
  11. REMICADE [Suspect]
     Indication: RHEUMATOID ARTHRITIS
     Route: 042
  12. ISCOTIN [Concomitant]
     Indication: ANTIBIOTIC PROPHYLAXIS
     Route: 048
  13. CALBLOCK [Concomitant]
     Indication: HYPERTENSION
     Route: 048
  14. LOXONIN [Concomitant]
     Indication: RHEUMATOID ARTHRITIS
     Route: 048
  15. OMEPRAZOLE [Concomitant]
     Indication: GASTRIC ULCER
     Route: 048
  16. MEDROL [Suspect]
     Indication: RHEUMATOID ARTHRITIS
     Route: 048

REACTIONS (4)
  - PNEUMOCYSTIS JIROVECI PNEUMONIA [None]
  - CYTOMEGALOVIRUS TEST POSITIVE [None]
  - STOMATITIS [None]
  - PNEUMONIA BACTERIAL [None]
